FAERS Safety Report 14719459 (Version 1)
Quarter: 2018Q2

REPORT INFORMATION
  Report Type: Spontaneous
  Country: FR (occurrence: FR)
  Receive Date: 20180405
  Receipt Date: 20180405
  Transmission Date: 20180711
  Serious: Yes (Other)
  Sender: FDA-Public Use
  Company Number: FR-MERCK KGAA-2045138

PATIENT
  Age: 56 Year
  Sex: Female
  Weight: 85 kg

DRUGS (2)
  1. LEVOTHYROX 25 NF [Suspect]
     Active Substance: LEVOTHYROXINE SODIUM
     Dates: start: 20170601
  2. NOVOTHYROX [Suspect]
     Active Substance: LEVOTHYROXINE SODIUM
     Indication: AUTOIMMUNE THYROIDITIS
     Dates: start: 20170601

REACTIONS (22)
  - Disturbance in attention [None]
  - Muscle spasms [None]
  - Abdominal distension [None]
  - Palpitations [None]
  - Fatigue [None]
  - Alopecia [None]
  - Eyelid oedema [None]
  - Impaired work ability [None]
  - Impaired driving ability [None]
  - Tendonitis [None]
  - Amnesia [None]
  - Confusional state [None]
  - Temperature regulation disorder [None]
  - Psychiatric symptom [None]
  - Abdominal pain upper [None]
  - Insomnia [None]
  - Deafness [None]
  - Vertigo [None]
  - Dyspnoea [None]
  - Visual impairment [None]
  - Asthenia [None]
  - Diarrhoea [None]

NARRATIVE: CASE EVENT DATE: 2017
